FAERS Safety Report 7638434-4 (Version None)
Quarter: 2011Q3

REPORT INFORMATION
  Report Type: 
  Country: None (occurrence: None)
  Receive Date: 20110727
  Receipt Date: 20110718
  Transmission Date: 20111222
  Serious: Yes (Death, Hospitalization)
  Sender: FDA-Public Use
  Company Number: US-JNJFOC-20110608217

PATIENT
  Sex: Female

DRUGS (1)
  1. REMICADE [Suspect]
     Indication: CROHN'S DISEASE
     Route: 042
     Dates: start: 20101001

REACTIONS (7)
  - CARDIOVASCULAR DISORDER [None]
  - ADVERSE EVENT [None]
  - PNEUMONIA [None]
  - MALAISE [None]
  - CEREBROVASCULAR ACCIDENT [None]
  - GANGRENE [None]
  - ASPERGILLOSIS [None]
